FAERS Safety Report 24844953 (Version 1)
Quarter: 2025Q1

REPORT INFORMATION
  Report Type: Spontaneous
  Country: GB (occurrence: GB)
  Receive Date: 20250115
  Receipt Date: 20250115
  Transmission Date: 20250409
  Serious: Yes (Hospitalization, Disabling, Other)
  Sender: B BRAUN
  Company Number: GB-B.Braun Medical Inc.-2169079

PATIENT
  Age: 86 Year
  Sex: Female
  Weight: 70 kg

DRUGS (3)
  1. LIDOCAINE HYDROCHLORIDE [Suspect]
     Active Substance: LIDOCAINE HYDROCHLORIDE
     Indication: Pain management
     Dates: start: 20241210
  2. BUPRENORPHINE [Concomitant]
     Active Substance: BUPRENORPHINE
  3. CODEINE [Concomitant]
     Active Substance: CODEINE

REACTIONS (12)
  - Chest pain [Not Recovered/Not Resolved]
  - Off label use [Not Recovered/Not Resolved]
  - Fatigue [Recovered/Resolved]
  - Muscle twitching [Recovered/Resolved]
  - Chest discomfort [Recovered/Resolved]
  - Pruritus [Recovered/Resolved]
  - Headache [Recovered/Resolved]
  - Somnolence [Recovering/Resolving]
  - Dysphagia [Recovered/Resolved with Sequelae]
  - Chromaturia [Recovered/Resolved]
  - Cough [Recovering/Resolving]
  - Cold sweat [Recovered/Resolved]
